FAERS Safety Report 5071842-7 (Version None)
Quarter: 2006Q3

REPORT INFORMATION
  Report Type: 
  Country: None (occurrence: None)
  Receive Date: 20060801
  Receipt Date: 20060718
  Transmission Date: 20061208
  Serious: Yes (Death)
  Sender: FDA-Public Use
  Company Number: US200607003079

PATIENT
  Sex: Female

DRUGS (1)
  1. INSULIN [Suspect]
     Indication: DIABETES MELLITUS INSULIN-DEPENDENT

REACTIONS (1)
  - DRUG CHEMICAL INCOMPATIBILITY [None]
